FAERS Safety Report 17963478 (Version 1)
Quarter: 2020Q2

REPORT INFORMATION
  Report Type: Spontaneous
  Country: CA (occurrence: CA)
  Receive Date: 20200630
  Receipt Date: 20200630
  Transmission Date: 20200714
  Serious: Yes (Life-Threatening)
  Sender: FDA-Public Use
  Company Number: CA-ASTRAZENECA-2020SE82046

PATIENT
  Age: 18024 Day
  Sex: Female
  Weight: 111.1 kg

DRUGS (33)
  1. ATORVASTATIN [Concomitant]
     Active Substance: ATORVASTATIN
     Route: 065
  2. PREDNISONE. [Concomitant]
     Active Substance: PREDNISONE
     Indication: ASTHMA
     Route: 065
  3. CALCIUM [Concomitant]
     Active Substance: CALCIUM
     Route: 048
  4. PERCOCET [Concomitant]
     Active Substance: ACETAMINOPHEN\OXYCODONE HYDROCHLORIDE
     Indication: PAIN
     Dosage: EVERY FOUR HOURS AS NEEDED
     Route: 065
  5. RAMIPRIL. [Concomitant]
     Active Substance: RAMIPRIL
     Route: 048
  6. COLACE [Concomitant]
     Active Substance: DOCUSATE SODIUM
     Route: 065
  7. LOSEC [Concomitant]
     Active Substance: OMEPRAZOLE
     Route: 065
  8. HYDROCHLOROTHIAZIDE. [Concomitant]
     Active Substance: HYDROCHLOROTHIAZIDE
     Route: 048
  9. APIDRA [Concomitant]
     Active Substance: INSULIN GLULISINE
     Dosage: 100 UNIT/ML CARTRIDGE USES TID HIGH DOSAGE
     Route: 065
  10. ADVAIR HFA [Concomitant]
     Active Substance: FLUTICASONE PROPIONATE\SALMETEROL XINAFOATE
     Dosage: 1 SPRAY TWO TIMES A DAY
     Route: 065
  11. NORTRIPTYLINE [Concomitant]
     Active Substance: NORTRIPTYLINE
     Route: 065
  12. SALBUTAMOL [Concomitant]
     Active Substance: ALBUTEROL
     Dosage: 100MCG 2 PUFFS FOUR TIMES DAILY
     Route: 065
  13. TYLENOL WITH CODEINE [Concomitant]
     Active Substance: ACETAMINOPHEN\CODEINE PHOSPHATE
     Indication: PAIN
     Dosage: 4.0DF AS REQUIRED
     Route: 065
  14. LANTUS SOLOSTAR [Concomitant]
     Active Substance: INSULIN GLARGINE
     Dosage: 74 UNITS DAILY
     Route: 065
  15. MOMETASONE [Concomitant]
     Active Substance: MOMETASONE
     Dosage: 50 MCG BASAL SPRAY ONCE DAILY
     Route: 065
  16. EPIPEN [Concomitant]
     Active Substance: EPINEPHRINE
     Dosage: 0.3 MG
     Route: 065
  17. TRAZODONE [Concomitant]
     Active Substance: TRAZODONE HYDROCHLORIDE
     Route: 065
  18. NYSTATIN. [Concomitant]
     Active Substance: NYSTATIN
     Dosage: 100000 UNIT/ML 5 ML FOUR TIMES A DAY
     Route: 065
  19. SPIRIVA RESPIMAT [Concomitant]
     Active Substance: TIOTROPIUM BROMIDE
     Dosage: 2.5 MCG INHALATIONS 2 SPRAYS ONCE DAILY
     Route: 065
  20. MIRTAZAPINE. [Concomitant]
     Active Substance: MIRTAZAPINE
     Route: 065
  21. ASA [Concomitant]
     Active Substance: ASPIRIN
     Route: 065
  22. VITAMIN D3 [Concomitant]
     Active Substance: CHOLECALCIFEROL
     Route: 048
  23. SALBUTAMOL [Concomitant]
     Active Substance: ALBUTEROL
     Dosage: 2.5MG/2.5ML ONCE DAILY
     Route: 065
  24. TYLENOL WITH CODEINE [Concomitant]
     Active Substance: ACETAMINOPHEN\CODEINE PHOSPHATE
     Indication: COUGH
     Dosage: 4.0DF AS REQUIRED
     Route: 065
  25. AMOXICILLIN/POTASSIUM CLAVULANATE [Concomitant]
     Active Substance: AMOXICILLIN\CLAVULANATE POTASSIUM
     Route: 048
  26. MYLAN NITRO [Concomitant]
     Active Substance: NITROGLYCERIN
     Dosage: 0.4MG/DOSE SPRAY
     Route: 065
  27. ZOPICIONE [Concomitant]
     Route: 048
  28. FASENRA [Suspect]
     Active Substance: BENRALIZUMAB
     Indication: ASTHMA
     Route: 058
     Dates: start: 20190212, end: 20190313
  29. PREDNISONE. [Concomitant]
     Active Substance: PREDNISONE
     Indication: ASTHMA
     Route: 065
  30. COMBIVENT [Concomitant]
     Active Substance: ALBUTEROL SULFATE\IPRATROPIUM BROMIDE
     Dosage: 1 INHALATION FOUR TIMES A DAY
     Route: 055
  31. CANESTEN [Concomitant]
     Active Substance: CLOTRIMAZOLE
     Dosage: 1 DAY KIT
     Route: 065
  32. SKIN CREAM [Concomitant]
     Active Substance: UNSPECIFIED INGREDIENT
     Dosage: THREE TIMES DAILY
     Route: 065
  33. FORXIGA [Concomitant]
     Active Substance: DAPAGLIFLOZIN
     Route: 065

REACTIONS (1)
  - Anaphylactic shock [Recovered/Resolved]

NARRATIVE: CASE EVENT DATE: 20190313
